FAERS Safety Report 6530361-9 (Version None)
Quarter: 2010Q1

REPORT INFORMATION
  Report Type: 
  Country: None (occurrence: None)
  Receive Date: 20100107
  Receipt Date: 20100106
  Transmission Date: 20100710
  Serious: Yes (Other)
  Sender: FDA-Public Use
  Company Number: US-AMGEN-US362560

PATIENT
  Sex: Female
  Weight: 67 kg

DRUGS (10)
  1. NPLATE [Suspect]
     Indication: IDIOPATHIC THROMBOCYTOPENIC PURPURA
     Route: 058
     Dates: start: 20080924, end: 20081224
  2. IMMUNOGLOBULINS [Concomitant]
     Route: 042
     Dates: start: 20021108
  3. DANAZOL [Concomitant]
     Route: 065
     Dates: start: 20080820
  4. VITAMIN B-12 [Concomitant]
     Dates: start: 20080924
  5. ZANTAC [Concomitant]
     Dates: start: 20081010
  6. BENADRYL [Concomitant]
     Dates: start: 20081010
  7. SOLU-MEDROL [Concomitant]
     Dates: start: 20081010
  8. TYLENOL (CAPLET) [Concomitant]
     Dates: start: 20081010
  9. FERRLECIT [Concomitant]
     Dates: start: 20081022
  10. PLATELETS [Concomitant]
     Dates: start: 20080617, end: 20090225

REACTIONS (1)
  - THERAPEUTIC RESPONSE DECREASED [None]
